FAERS Safety Report 4522505-5 (Version None)
Quarter: 2004Q4

REPORT INFORMATION
  Report Type: 
  Country: None (occurrence: None)
  Receive Date: 20041207
  Receipt Date: 20041118
  Transmission Date: 20050328
  Serious: Yes (Other)
  Sender: FDA-Public Use
  Company Number: USA041184627

PATIENT
  Sex: Female

DRUGS (1)
  1. PROZAC [Suspect]
     Dates: start: 19980101, end: 20041101

REACTIONS (1)
  - FACIAL PALSY [None]
